FAERS Safety Report 7631894-4 (Version None)
Quarter: 2011Q3

REPORT INFORMATION
  Report Type: 
  Country: None (occurrence: None)
  Receive Date: 20110725
  Receipt Date: 20110519
  Transmission Date: 20111222
  Serious: Yes (Other)
  Sender: FDA-Public Use
  Company Number: US-BRISTOL-MYERS SQUIBB COMPANY-15721277

PATIENT
  Age: 38 Year
  Sex: Female

DRUGS (9)
  1. COUMADIN [Suspect]
     Indication: DEEP VEIN THROMBOSIS
     Dosage: CHANGED FROM 3MG ONE DAY AND 4MG THE OTHER DAYS. DOSE:5MG
     Route: 048
     Dates: start: 20100712
  2. XANAX [Concomitant]
  3. BUSPAR [Concomitant]
  4. HYDROCODONE BITARTRATE [Concomitant]
  5. TRAZODONE HCL [Concomitant]
  6. HYOMAX-SR [Concomitant]
  7. NAPROXEN [Concomitant]
  8. DITROPAN [Concomitant]
  9. ROBAXIN [Concomitant]

REACTIONS (5)
  - HAEMATOCHEZIA [None]
  - ASTHENIA [None]
  - PROTHROMBIN TIME RATIO INCREASED [None]
  - HEADACHE [None]
  - NAUSEA [None]
